FAERS Safety Report 23408102 (Version 2)
Quarter: 2024Q1

REPORT INFORMATION
  Report Type: Report from Study
  Country: CA (occurrence: CA)
  Receive Date: 20240117
  Receipt Date: 20240314
  Transmission Date: 20240409
  Serious: Yes (Other)
  Sender: FDA-Public Use
  Company Number: CA-BAYER-2024A006016

PATIENT
  Sex: Female

DRUGS (1)
  1. EYLEA [Suspect]
     Active Substance: AFLIBERCEPT
     Indication: Diabetic retinal oedema
     Dosage: 2 MG/0.05 ML, SOLUTION FOR INJECTION, 40 MG/ML
     Dates: start: 20231006

REACTIONS (2)
  - Blindness [Unknown]
  - Herpes zoster [Unknown]
